FAERS Safety Report 5995530-5 (Version None)
Quarter: 2008Q4

REPORT INFORMATION
  Report Type: 
  Country: None (occurrence: None)
  Receive Date: 20081212
  Receipt Date: 20081001
  Transmission Date: 20090506
  Serious: No
  Sender: FDA-Public Use
  Company Number: US-ABBOTT-08P-163-0479028-00

PATIENT
  Sex: Female
  Weight: 47.67 kg

DRUGS (15)
  1. HUMIRA [Suspect]
     Indication: RHEUMATOID ARTHRITIS
     Route: 058
     Dates: start: 20080917
  2. HUMIRA [Suspect]
     Indication: COLITIS ULCERATIVE
  3. COLECALCIFEROL [Concomitant]
     Indication: MINERAL SUPPLEMENTATION
     Route: 048
     Dates: start: 20080201
  4. METHOTREXATE [Concomitant]
     Indication: RHEUMATOID ARTHRITIS
     Route: 058
     Dates: start: 19980101
  5. LIALDA [Concomitant]
     Indication: COLITIS ULCERATIVE
     Dosage: X2
     Dates: start: 20080801
  6. CLINIRAL [Concomitant]
     Indication: RHEUMATOID ARTHRITIS
     Dosage: X2
     Dates: start: 20080717
  7. FOLIC ACID [Concomitant]
     Indication: VITAMIN SUPPLEMENTATION
     Route: 048
     Dates: start: 19980101
  8. LEVONORGESTREL [Concomitant]
     Indication: CONTRACEPTION
     Dates: start: 20040801
  9. LEVOTHYROXINE SODIUM [Concomitant]
     Dosage: 137MG AND 125MG ALTERNATES DAYS
     Route: 048
     Dates: start: 19970101
  10. PANTOPRAZOLE SODIUM [Concomitant]
     Indication: ABDOMINAL DISCOMFORT
     Route: 048
     Dates: start: 20080912
  11. PREDNISONE TAB [Concomitant]
     Indication: COLITIS ULCERATIVE
     Route: 048
     Dates: start: 20080810
  12. PREDNISONE TAB [Concomitant]
     Indication: RHEUMATOID ARTHRITIS
  13. FEXOFENADINE [Concomitant]
     Indication: SEASONAL ALLERGY
     Route: 048
     Dates: start: 19990101
  14. BUDESONIDE [Concomitant]
     Indication: SEASONAL ALLERGY
     Route: 045
     Dates: start: 20000101
  15. LEKOVIT CA [Concomitant]
     Indication: VITAMIN SUPPLEMENTATION
     Route: 048
     Dates: start: 20000101

REACTIONS (3)
  - ACCIDENTAL EXPOSURE [None]
  - ANXIETY [None]
  - INJECTION SITE PAIN [None]
